FAERS Safety Report 8180882-0 (Version None)
Quarter: 2012Q1

REPORT INFORMATION
  Report Type: 
  Country: None (occurrence: None)
  Receive Date: 20120302
  Receipt Date: 20120222
  Transmission Date: 20120608
  Serious: Yes (Hospitalization)
  Sender: FDA-Public Use
  Company Number: US-JNJFOC-20120212491

PATIENT
  Sex: Female
  Weight: 46 kg

DRUGS (3)
  1. REMICADE [Suspect]
     Indication: CROHN'S DISEASE
     Route: 042
     Dates: start: 20041224, end: 20060606
  2. HUMIRA [Concomitant]
     Dates: start: 20080906
  3. CLOTRIMAZOLE [Concomitant]
     Route: 061

REACTIONS (1)
  - CROHN'S DISEASE [None]
